FAERS Safety Report 8866975 (Version 1)
Quarter: 2012Q4

REPORT INFORMATION
  Report Type: 
  Country: US (occurrence: US)
  Receive Date: 20121025
  Receipt Date: 20121025
  Transmission Date: 20130627
  Serious: No
  Sender: FDA-Public Use
  Company Number: US-AMGEN-USASP2012014221

PATIENT
  Age: 41 Year
  Sex: Female
  Weight: 56.69 kg

DRUGS (4)
  1. ENBREL [Suspect]
     Dosage: 50 mg, qwk
     Route: 058
  2. ARAVA [Concomitant]
     Dosage: 10 mg, UNK
  3. MULTIVITAMIN                       /00097801/ [Concomitant]
  4. NITRO DUR [Concomitant]
     Dosage: 0.4 mg, qh

REACTIONS (5)
  - Fatigue [Unknown]
  - Weight decreased [Unknown]
  - Visual acuity reduced [Unknown]
  - Nasopharyngitis [Recovered/Resolved]
  - Sinusitis [Recovered/Resolved]
